FAERS Safety Report 24652507 (Version 1)
Quarter: 2024Q4

REPORT INFORMATION
  Report Type: Spontaneous
  Country: US (occurrence: None)
  Receive Date: 20241122
  Receipt Date: 20241122
  Transmission Date: 20250114
  Serious: Yes (Hospitalization)
  Sender: Public
  Company Number: None

PATIENT
  Age: 58 Year
  Sex: Male
  Weight: 104.3 kg

DRUGS (3)
  1. DARATUMUMAB\HYALURONIDASE-FIHJ [Suspect]
     Active Substance: DARATUMUMAB\HYALURONIDASE-FIHJ
     Dates: start: 20240415, end: 20241016
  2. Dexamethasone 20 mg [Concomitant]
  3. Lenalidomide(CC-5013) 10 mg [Concomitant]

REACTIONS (14)
  - Fatigue [None]
  - Pallor [None]
  - Hypotension [None]
  - Dyspnoea [None]
  - Cough [None]
  - Diarrhoea [None]
  - Sepsis [None]
  - Hypophagia [None]
  - Chronic kidney disease [None]
  - Atrial flutter [None]
  - Electrocardiogram U-wave abnormality [None]
  - Electrocardiogram abnormal [None]
  - Atrioventricular block [None]
  - Myocardial infarction [None]

NARRATIVE: CASE EVENT DATE: 20241117
